FAERS Safety Report 11777081 (Version 1)
Quarter: 2015Q4

REPORT INFORMATION
  Report Type: Spontaneous
  Country: US (occurrence: US)
  Receive Date: 20151125
  Receipt Date: 20151125
  Transmission Date: 20160304
  Serious: No
  Sender: FDA-Public Use
  Company Number: US-TEVA-605197USA

PATIENT
  Sex: Female

DRUGS (1)
  1. AMIODARONE [Suspect]
     Active Substance: AMIODARONE

REACTIONS (8)
  - Dyspnoea [Unknown]
  - Restlessness [Unknown]
  - Hypoaesthesia [Unknown]
  - Tremor [Unknown]
  - Nausea [Unknown]
  - Visual impairment [Unknown]
  - Eye disorder [Unknown]
  - Weight decreased [Unknown]
